FAERS Safety Report 10178818 (Version 1)
Quarter: 2014Q2

REPORT INFORMATION
  Report Type: Spontaneous
  Country: US (occurrence: None)
  Receive Date: 20140516
  Receipt Date: 20140516
  Transmission Date: 20141212
  Serious: Yes (Other)
  Sender: FDA-Public Use
  Company Number: None

PATIENT
  Age: 76 Year
  Sex: Male
  Weight: 80.74 kg

DRUGS (6)
  1. LEVAQUIN GENERIC LEVOFLOXACIN 750 MG TABLETS JOHNSON+JOHNSON [Suspect]
     Indication: UPPER RESPIRATORY TRACT INFECTION
     Dosage: BY MOUTH
     Dates: start: 20140401, end: 20140404
  2. LEVAQUIN GENERIC LEVOFLOXACIN 750 MG TABLETS JOHNSON+JOHNSON [Suspect]
     Indication: COUGH
     Dosage: BY MOUTH
     Dates: start: 20140401, end: 20140404
  3. XANAX [Concomitant]
  4. VITAMIN D3 [Concomitant]
  5. VIT. C [Concomitant]
  6. DELSYME [Concomitant]

REACTIONS (14)
  - Feeling abnormal [None]
  - Malaise [None]
  - Nausea [None]
  - Decreased appetite [None]
  - Anosmia [None]
  - Peripheral swelling [None]
  - Diarrhoea [None]
  - Palpitations [None]
  - Oropharyngeal pain [None]
  - Headache [None]
  - Neck pain [None]
  - Pruritus generalised [None]
  - Tongue blistering [None]
  - Stomatitis [None]
